FAERS Safety Report 7611132-9 (Version None)
Quarter: 2011Q3

REPORT INFORMATION
  Report Type: 
  Country: None (occurrence: None)
  Receive Date: 20110707
  Receipt Date: 20110627
  Transmission Date: 20111222
  Serious: Yes (Hospitalization)
  Sender: FDA-Public Use
  Company Number: 2011SP030218

PATIENT
  Age: 66 Year
  Sex: Male
  Weight: 54 kg

DRUGS (2)
  1. TEMODAL [Suspect]
     Indication: GLIOBLASTOMA MULTIFORME
     Dosage: 100 MG;QD;PO; 20 MG;HS;PO
     Route: 048
     Dates: start: 20110302, end: 20110401
  2. TEMODAL [Suspect]
     Indication: GLIOBLASTOMA MULTIFORME
     Dosage: 100 MG;QD;PO; 20 MG;HS;PO
     Route: 048
     Dates: start: 20110302, end: 20110401

REACTIONS (8)
  - HERPES SIMPLEX SEROLOGY POSITIVE [None]
  - LYMPHOCYTE COUNT DECREASED [None]
  - SOMNOLENCE [None]
  - ENCEPHALITIS HERPES [None]
  - MENINGISM [None]
  - PYREXIA [None]
  - ALTERED STATE OF CONSCIOUSNESS [None]
  - SOPOR [None]
